FAERS Safety Report 6543686-8 (Version None)
Quarter: 2010Q1

REPORT INFORMATION
  Report Type: 
  Country: None (occurrence: None)
  Receive Date: 20100120
  Receipt Date: 20100112
  Transmission Date: 20100710
  Serious: Yes (Life-Threatening, Other)
  Sender: FDA-Public Use
  Company Number: GXKR2009GB12959

PATIENT
  Sex: Male

DRUGS (1)
  1. DICLOFENAC (NGX) [Suspect]
     Dosage: 100 MG/DAY
     Route: 048
     Dates: start: 20091007, end: 20091025

REACTIONS (4)
  - ANKLE FRACTURE [None]
  - FALL [None]
  - RESUSCITATION [None]
  - SWELLING FACE [None]
